FAERS Safety Report 4341373-8 (Version None)
Quarter: 2004Q2

REPORT INFORMATION
  Report Type: 
  Country: None (occurrence: None)
  Receive Date: 20040409
  Receipt Date: 20040112
  Transmission Date: 20050107
  Serious: Yes (Hospitalization)
  Sender: FDA-Public Use
  Company Number: 04P-163-0246884-00

PATIENT
  Age: 55 Year
  Sex: Female

DRUGS (6)
  1. DEPAKOTE [Suspect]
     Indication: CONVULSION
     Dosage: 500MG AT BEDTIME/250MG
     Dates: end: 20031101
  2. CARBAMAZEPINE [Concomitant]
  3. CLONIDINE HCL [Concomitant]
  4. TOPROL-XL [Concomitant]
  5. INDAPAMIDE [Concomitant]
  6. HALOPERIDOL [Concomitant]

REACTIONS (2)
  - AMMONIA INCREASED [None]
  - CONFUSIONAL STATE [None]
